FAERS Safety Report 4946669-4 (Version None)
Quarter: 2006Q1

REPORT INFORMATION
  Report Type: 
  Country: None (occurrence: None)
  Receive Date: 20060317
  Receipt Date: 20060215
  Transmission Date: 20060701
  Serious: Yes (Hospitalization)
  Sender: FDA-Public Use
  Company Number: JP-MERCK-0602USA05134

PATIENT
  Age: 53 Year
  Sex: Female

DRUGS (8)
  1. PEPCID RPD [Suspect]
     Indication: PROPHYLAXIS AGAINST GASTROINTESTINAL ULCER
     Route: 048
     Dates: start: 20051114, end: 20060127
  2. COTRIM [Concomitant]
     Indication: INFECTION PROPHYLAXIS
     Route: 048
     Dates: start: 20060125
  3. PREDONINE [Concomitant]
     Indication: DERMATOMYOSITIS
     Route: 048
     Dates: start: 20060122, end: 20060207
  4. PREDONINE [Concomitant]
     Route: 048
     Dates: start: 20060115, end: 20060118
  5. PREDONINE [Concomitant]
     Route: 048
     Dates: start: 20060208, end: 20060222
  6. PREDONINE [Concomitant]
     Route: 048
     Dates: start: 20060223
  7. ALFAROL [Concomitant]
     Indication: OSTEOPOROSIS PROPHYLAXIS
     Route: 048
     Dates: start: 20060118
  8. SOLU-MEDROL [Concomitant]
     Indication: DERMATOMYOSITIS
     Route: 048
     Dates: start: 20060119, end: 20060121

REACTIONS (5)
  - ANAEMIA [None]
  - GASTRITIS [None]
  - INTERSTITIAL LUNG DISEASE [None]
  - OCCULT BLOOD POSITIVE [None]
  - PLATELET COUNT DECREASED [None]
